FAERS Safety Report 21208861 (Version 1)
Quarter: 2022Q3

REPORT INFORMATION
  Report Type: Spontaneous
  Country: US (occurrence: None)
  Receive Date: 20220812
  Receipt Date: 20220812
  Transmission Date: 20221026
  Serious: Yes (Life-Threatening, Hospitalization)
  Sender: FDA-Public Use
  Company Number: None

PATIENT
  Age: 64 Year
  Sex: Female

DRUGS (3)
  1. TUCATINIB [Suspect]
     Active Substance: TUCATINIB
     Dates: start: 20220503, end: 20220725
  2. CAPECITABINE [Suspect]
     Active Substance: CAPECITABINE
  3. TRASTUZUMAB [Suspect]
     Active Substance: TRASTUZUMAB

REACTIONS (3)
  - Arterial thrombosis [None]
  - Peripheral ischaemia [None]
  - Aortic thrombosis [None]

NARRATIVE: CASE EVENT DATE: 20220725
